FAERS Safety Report 20057948 (Version 1)
Quarter: 2021Q4

REPORT INFORMATION
  Report Type: Spontaneous
  Country: FR (occurrence: FR)
  Receive Date: 20211111
  Receipt Date: 20211111
  Transmission Date: 20220304
  Serious: Yes (Other)
  Sender: FDA-Public Use
  Company Number: FR-NOVARTISPH-NVSC2021FR255386

PATIENT
  Age: 82 Year
  Sex: Male

DRUGS (3)
  1. PREDNISONE [Suspect]
     Active Substance: PREDNISONE
     Indication: Product used for unknown indication
     Dosage: 20 MG (TOOK 4 DOSES AND THEN STOPPED)
     Route: 065
     Dates: end: 20180411
  2. BORTEZOMIB [Suspect]
     Active Substance: BORTEZOMIB
     Indication: Product used for unknown indication
     Dosage: 4 WEEK(S)/CYCLE
     Route: 065
     Dates: end: 20180411
  3. MELPHALAN [Suspect]
     Active Substance: MELPHALAN
     Indication: Product used for unknown indication
     Dosage: 18 MG (TOOK 4 DOSES AND THEN STOPPED)
     Route: 065
     Dates: end: 20180411

REACTIONS (1)
  - Renal impairment [Unknown]
